FAERS Safety Report 7748213-5 (Version None)
Quarter: 2011Q3

REPORT INFORMATION
  Report Type: 
  Country: None (occurrence: None)
  Receive Date: 20110913
  Receipt Date: 20110822
  Transmission Date: 20111222
  Serious: Yes (Other)
  Sender: FDA-Public Use
  Company Number: HR-ELI_LILLY_AND_COMPANY-HR201108006526

PATIENT
  Sex: Male

DRUGS (7)
  1. CYMBALTA [Suspect]
     Indication: DIABETIC NEUROPATHY
     Dosage: 60 MG, QD
     Route: 065
     Dates: start: 20100301, end: 20110811
  2. GLUCOBAY [Concomitant]
     Dosage: 200 MG, QD
     Route: 065
  3. ATORVASTATIN CALCIUM [Concomitant]
     Dosage: 20 MG, QD
     Route: 065
  4. NEURONTIN [Concomitant]
     Dosage: 600 MG, QD
     Route: 065
  5. AMARYL [Concomitant]
     Indication: DIABETES MELLITUS
     Dosage: 4.5 MG, QD
     Route: 065
  6. ANDOL [Concomitant]
     Dosage: 100 MG, QD
     Route: 065
  7. RAMIPRIL [Concomitant]
     Dosage: 1.25 MG, QD
     Route: 065

REACTIONS (3)
  - ASPARTATE AMINOTRANSFERASE INCREASED [None]
  - GAMMA-GLUTAMYLTRANSFERASE INCREASED [None]
  - ALANINE AMINOTRANSFERASE INCREASED [None]
